FAERS Safety Report 10038069 (Version 1)
Quarter: 2014Q1

REPORT INFORMATION
  Report Type: Spontaneous
  Country: US (occurrence: None)
  Receive Date: 20140306
  Receipt Date: 20140306
  Transmission Date: 20141002
  Serious: Yes (Other)
  Sender: FDA-Public Use
  Company Number: 163-21880-13043742

PATIENT
  Age: 70 Year
  Sex: Female
  Weight: 104.33 kg

DRUGS (14)
  1. REVLIMID (LENALIDOMIDE) (10 MILLIGRAM, CAPSULES) [Suspect]
     Indication: MYELODYSPLASTIC SYNDROME
     Route: 048
     Dates: start: 20121117
  2. HUMALOG (INSULIN LISPRO) (INJECTION) [Concomitant]
  3. HYZAAR (HYZAAR) (UNKNOWN) [Concomitant]
  4. LASIX (FUROSEMIDE) (TABLETS) [Concomitant]
  5. COUMADIN (WARFARIN SODIUM) (TABLETS) [Concomitant]
  6. SYNTHROID (LEVOTHYROXINE SODIUM) (TABLETS) [Concomitant]
  7. LANTUS (INSULIN GLARGINE) (INJECTION) [Concomitant]
  8. DIGOXIN (DIGOXIN) (TABLETS) [Concomitant]
  9. MULTIPLE VITAMINS (MULTIPLE VITAMINS) (TABLETS) [Concomitant]
  10. VITAMIN D3 (COLECALCIFEROL) TABLETS) [Concomitant]
  11. VITAMIN B COMPLEX (B-KOMPLEX ^LECIVA^) (TABLETS) [Concomitant]
  12. BIOTIN (BIOTIN) (CAPSULES) [Concomitant]
  13. COMPLEX (BECOSYM FORTE) (TABLETS) [Concomitant]
  14. IRON PLUS (IRON) (TABLETS) [Concomitant]

REACTIONS (5)
  - Full blood count decreased [None]
  - Platelet count abnormal [None]
  - Red blood cell count abnormal [None]
  - Pain [None]
  - Oedema peripheral [None]
